FAERS Safety Report 9376494 (Version 1)
Quarter: 2013Q2

REPORT INFORMATION
  Report Type: Spontaneous
  Country: US (occurrence: None)
  Receive Date: 20130628
  Receipt Date: 20130628
  Transmission Date: 20140414
  Serious: Yes (Other)
  Sender: FDA-Public Use
  Company Number: None

PATIENT
  Age: 59 Year
  Sex: Female
  Weight: 64.41 kg

DRUGS (1)
  1. EXPAREL [Suspect]
     Indication: POSTOPERATIVE ANALGESIA
     Route: 050
     Dates: start: 20130530, end: 20130530

REACTIONS (5)
  - Dyspnoea [None]
  - Dyspnoea [None]
  - Dyspnoea [None]
  - Cough [None]
  - Hypoaesthesia [None]
